FAERS Safety Report 25613474 (Version 1)
Quarter: 2025Q3

REPORT INFORMATION
  Report Type: Spontaneous
  Country: US (occurrence: US)
  Receive Date: 20250728
  Receipt Date: 20250728
  Transmission Date: 20251021
  Serious: No
  Sender: PRASCO
  Company Number: US-Prasco Laboratories-PRAS20250296

PATIENT
  Sex: Male

DRUGS (2)
  1. DEXTROAMPHETAMINE SULFATE [Suspect]
     Active Substance: DEXTROAMPHETAMINE SULFATE
     Indication: Autism spectrum disorder
     Route: 048
  2. DEXTROAMPHETAMINE SULFATE [Suspect]
     Active Substance: DEXTROAMPHETAMINE SULFATE
     Indication: Attention deficit hyperactivity disorder

REACTIONS (1)
  - Irritability [Recovered/Resolved]
